FAERS Safety Report 9134569 (Version 3)
Quarter: 2013Q2

REPORT INFORMATION
  Report Type: Spontaneous
  Country: SE (occurrence: SE)
  Receive Date: 20130304
  Receipt Date: 20130416
  Transmission Date: 20140414
  Serious: Yes (Other)
  Sender: FDA-Public Use
  Company Number: SE-ELI_LILLY_AND_COMPANY-SE201302007665

PATIENT
  Sex: Female

DRUGS (9)
  1. HUMULIN NPH [Suspect]
     Indication: DIABETES MELLITUS
     Dosage: 54 IU, UNKNOWN
     Route: 058
     Dates: start: 20121019, end: 20121106
  2. INSUMAN BASAL [Concomitant]
     Indication: DIABETES MELLITUS
     Dosage: 54 IU, UNKNOWN
     Route: 058
     Dates: start: 20111201, end: 20121018
  3. ENALAPRIL COMP SANDOZ [Concomitant]
  4. METFORMIN [Concomitant]
  5. FELODIPIN [Concomitant]
  6. SIMVASTATIN [Concomitant]
  7. SOTALOL [Concomitant]
  8. INSUMAN RAPID [Concomitant]
  9. TROMBYL [Concomitant]

REACTIONS (3)
  - Pruritus [Recovered/Resolved]
  - Paraesthesia [Recovered/Resolved]
  - Headache [Recovered/Resolved]
